FAERS Safety Report 6748081-4 (Version None)
Quarter: 2010Q2

REPORT INFORMATION
  Report Type: 
  Country: None (occurrence: None)
  Receive Date: 20100531
  Receipt Date: 20100517
  Transmission Date: 20101027
  Serious: Yes (Hospitalization)
  Sender: FDA-Public Use
  Company Number: US-ASTRAZENECA-2010SE24724

PATIENT
  Age: 952 Month
  Sex: Female

DRUGS (4)
  1. SEROQUEL [Suspect]
     Route: 048
     Dates: start: 20041122
  2. FUROSEMIDE [Concomitant]
     Dates: start: 20050111
  3. LORAZEPAM [Concomitant]
     Dates: start: 20051101
  4. DIOVAN [Concomitant]
     Dates: start: 20040626

REACTIONS (6)
  - DIABETES MELLITUS [None]
  - DIABETES MELLITUS INADEQUATE CONTROL [None]
  - HYPERLIPIDAEMIA [None]
  - INCISION SITE INFECTION [None]
  - KNEE ARTHROPLASTY [None]
  - OSTEOARTHRITIS [None]
